FAERS Safety Report 15785941 (Version 3)
Quarter: 2020Q1

REPORT INFORMATION
  Report Type: Spontaneous
  Country: US (occurrence: US)
  Receive Date: 20190103
  Receipt Date: 20200320
  Transmission Date: 20200409
  Serious: Yes (Other)
  Sender: FDA-Public Use
  Company Number: US-SA-2018SA397724

PATIENT
  Age: 43 Year
  Sex: Female

DRUGS (2)
  1. DUPIXENT [Suspect]
     Active Substance: DUPILUMAB
     Indication: ECZEMA
     Dosage: 300 MG, QOW
     Route: 058
     Dates: start: 20181004
  2. DUPIXENT [Suspect]
     Active Substance: DUPILUMAB
     Indication: DERMATITIS ATOPIC

REACTIONS (8)
  - Influenza like illness [Unknown]
  - Skin exfoliation [Unknown]
  - Menorrhagia [Unknown]
  - Erythema [Unknown]
  - Unevaluable event [Unknown]
  - Dry eye [Unknown]
  - Eye inflammation [Unknown]
  - Eye pruritus [Unknown]
